FAERS Safety Report 4312867-6 (Version None)
Quarter: 2004Q1

REPORT INFORMATION
  Report Type: 
  Country: None (occurrence: None)
  Receive Date: 20040304
  Receipt Date: 20040227
  Transmission Date: 20041129
  Serious: Yes (Death, Hospitalization)
  Sender: FDA-Public Use
  Company Number: 2004-112413-NL

PATIENT
  Age: 81 Year
  Sex: Female

DRUGS (3)
  1. MIRTAZAPINE [Suspect]
     Indication: DEPRESSION
     Dosage: 30 MG ORAL
     Route: 048
     Dates: start: 20030601
  2. KARVEZIDE [Concomitant]
  3. NEBILOT [Concomitant]

REACTIONS (10)
  - CARDIAC ARREST [None]
  - CARDIAC DISORDER [None]
  - CHRONIC OBSTRUCTIVE AIRWAYS DISEASE [None]
  - ENTEROBACTER PNEUMONIA [None]
  - HEPATIC FAILURE [None]
  - HYPERTENSION [None]
  - NEPHRECTOMY [None]
  - PULMONARY EMBOLISM [None]
  - RENAL FAILURE [None]
  - RESPIRATORY FAILURE [None]
